FAERS Safety Report 5316627-9 (Version None)
Quarter: 2007Q2

REPORT INFORMATION
  Report Type: 
  Country: None (occurrence: None)
  Receive Date: 20070504
  Receipt Date: 20070502
  Transmission Date: 20071010
  Serious: Yes (Other)
  Sender: FDA-Public Use
  Company Number: TR-BRISTOL-MYERS SQUIBB COMPANY-13767876

PATIENT
  Age: 63 Year
  Sex: Male

DRUGS (1)
  1. HYDROXYUREA [Suspect]
     Indication: POLYCYTHAEMIA
     Route: 048
     Dates: start: 20010101

REACTIONS (3)
  - GRANULOMA [None]
  - MACROCYTOSIS [None]
  - SKIN ULCER [None]
